FAERS Safety Report 4829453-1 (Version None)
Quarter: 2005Q4

REPORT INFORMATION
  Report Type: 
  Country: None (occurrence: None)
  Receive Date: 20051116
  Receipt Date: 20051109
  Transmission Date: 20060501
  Serious: Yes (Death)
  Sender: FDA-Public Use
  Company Number: US-MERCK-0511USA01661

PATIENT
  Sex: Female

DRUGS (2)
  1. VIOXX [Suspect]
     Route: 065
  2. CELEBREX [Concomitant]
     Route: 065

REACTIONS (3)
  - ARTERIOSCLEROSIS [None]
  - DEATH [None]
  - HYPERTENSION [None]
